FAERS Safety Report 6825820-5 (Version None)
Quarter: 2010Q3

REPORT INFORMATION
  Report Type: 
  Country: None (occurrence: None)
  Receive Date: 20100708
  Receipt Date: 20100708
  Transmission Date: 20110219
  Serious: Yes (Other)
  Sender: FDA-Public Use
  Company Number: None

PATIENT
  Sex: Female
  Weight: 66.6788 kg

DRUGS (3)
  1. ZOLOFT [Suspect]
     Indication: BIPOLAR DISORDER
     Dosage: 50 MG  TRE Q L
     Dates: start: 20090330
  2. ZOLOFT [Suspect]
     Indication: OBSESSIVE-COMPULSIVE DISORDER
     Dosage: 50 MG  TRE Q L
     Dates: start: 20090330
  3. ZOLOFT [Suspect]
     Indication: POST-TRAUMATIC STRESS DISORDER
     Dosage: 50 MG  TRE Q L
     Dates: start: 20090330

REACTIONS (2)
  - HALLUCINATION [None]
  - PRODUCT SUBSTITUTION ISSUE [None]
